FAERS Safety Report 25817246 (Version 1)
Quarter: 2025Q3

REPORT INFORMATION
  Report Type: Spontaneous
  Country: US (occurrence: US)
  Receive Date: 20250918
  Receipt Date: 20250918
  Transmission Date: 20251020
  Serious: No
  Sender: INNOGENIX, LLC
  Company Number: US-Innogenix, LLC-2184761

PATIENT

DRUGS (8)
  1. BACLOFEN [Suspect]
     Active Substance: BACLOFEN
     Indication: Pain
  2. BACLOFEN [Suspect]
     Active Substance: BACLOFEN
     Indication: Muscle spasms
  3. METHOCARBAMOL [Suspect]
     Active Substance: METHOCARBAMOL
  4. MORPHINE SULFATE [Suspect]
     Active Substance: MORPHINE SULFATE
  5. MELOXICAM [Suspect]
     Active Substance: MELOXICAM
  6. ACETAMINOPHEN [Suspect]
     Active Substance: ACETAMINOPHEN
  7. PREGABALIN [Suspect]
     Active Substance: PREGABALIN
  8. DIAZEPAM [Suspect]
     Active Substance: DIAZEPAM

REACTIONS (1)
  - Drug ineffective [Unknown]
